FAERS Safety Report 4948579-5 (Version None)
Quarter: 2006Q1

REPORT INFORMATION
  Report Type: 
  Country: None (occurrence: None)
  Receive Date: 20060313
  Receipt Date: 20060223
  Transmission Date: 20060701
  Serious: Yes (Other)
  Sender: FDA-Public Use
  Company Number: 8015330

PATIENT
  Sex: Male

DRUGS (3)
  1. KEPPRA [Suspect]
     Indication: EPILEPSY
     Dosage: 1.5 G /D
     Dates: start: 20020101, end: 20050101
  2. KEPPRA [Suspect]
     Indication: EPILEPSY
     Dosage: 1.25 G  /D
     Dates: start: 20050101, end: 20060101
  3. KEPPRA [Suspect]
     Indication: EPILEPSY
     Dosage: 1 G  /D
     Dates: start: 20060101

REACTIONS (5)
  - COAGULOPATHY [None]
  - GLOMERULAR FILTRATION RATE INCREASED [None]
  - HEPATIC ENZYME INCREASED [None]
  - THROMBOCYTOPENIA [None]
  - WHITE BLOOD CELL COUNT DECREASED [None]
